FAERS Safety Report 23039907 (Version 1)
Quarter: 2023Q4

REPORT INFORMATION
  Report Type: Spontaneous
  Country: FR (occurrence: FR)
  Receive Date: 20231006
  Receipt Date: 20231006
  Transmission Date: 20240109
  Serious: Yes (Death)
  Sender: FDA-Public Use
  Company Number: None

PATIENT
  Age: 63 Year
  Sex: Male
  Weight: 52 kg

DRUGS (7)
  1. METHOTREXATE [Suspect]
     Active Substance: METHOTREXATE
     Indication: Transplant rejection
     Dosage: 1/WK
     Dates: start: 20230629
  2. METHYLPREDNISOLONE [Suspect]
     Active Substance: METHYLPREDNISOLONE
     Indication: Transplant rejection
     Dosage: PAR J
     Dates: start: 20230614
  3. RITUXIMAB [Suspect]
     Active Substance: RITUXIMAB
     Indication: Transplant rejection
     Dates: start: 20230623, end: 20230623
  4. NEORAL [Suspect]
     Active Substance: CYCLOSPORINE
     Indication: Prophylaxis
     Dates: start: 20230505
  5. ETANERCEPT [Suspect]
     Active Substance: ETANERCEPT
     Indication: Transplant rejection
     Dosage: 2X/WK
     Dates: start: 20230626
  6. CELLCEPT [Suspect]
     Active Substance: MYCOPHENOLATE MOFETIL
     Indication: Prophylaxis
     Dosage: 2X/D
     Dates: start: 20230505, end: 20230616
  7. RUXOLITINIB [Suspect]
     Active Substance: RUXOLITINIB
     Indication: Transplant rejection
     Dosage: 2X/D
     Dates: start: 20230619

REACTIONS (1)
  - Septic shock [Fatal]

NARRATIVE: CASE EVENT DATE: 20230712
